FAERS Safety Report 8524318-6 (Version None)
Quarter: 2012Q3

REPORT INFORMATION
  Report Type: 
  Country: None (occurrence: None)
  Receive Date: 20120720
  Receipt Date: 20120718
  Transmission Date: 20120928
  Serious: Yes (Other)
  Sender: FDA-Public Use
  Company Number: VE-PFIZER INC-2012149959

PATIENT
  Age: 50 Year
  Sex: Female

DRUGS (4)
  1. LYRICA [Concomitant]
     Indication: PAIN
     Dosage: 75 MG, UNK
     Dates: start: 20120601
  2. CONCOR [Concomitant]
     Dosage: 2.5 MG, 1X/DAY
     Route: 048
     Dates: start: 20100101
  3. LIPITOR [Suspect]
     Dosage: 40 MG, 1X/DAY
     Route: 048
     Dates: start: 20100101
  4. ASPIRIN [Concomitant]
     Indication: TACHYCARDIA
     Dosage: 81 MG, 1X/DAY
     Route: 048
     Dates: start: 20100101

REACTIONS (2)
  - ROAD TRAFFIC ACCIDENT [None]
  - FOOT FRACTURE [None]
